FAERS Safety Report 12428291 (Version 1)
Quarter: 2016Q2

REPORT INFORMATION
  Report Type: Spontaneous
  Country: US (occurrence: None)
  Receive Date: 20160601
  Receipt Date: 20160601
  Transmission Date: 20160815
  Serious: Yes (Hospitalization)
  Sender: FDA-Public Use
  Company Number: None

PATIENT
  Age: 57 Year
  Sex: Male
  Weight: 97.52 kg

DRUGS (3)
  1. ALLOPURINOL 300 MG, 300 MG [Suspect]
     Active Substance: ALLOPURINOL
     Indication: PROPHYLAXIS
     Route: 048
     Dates: start: 20160421, end: 20160511
  2. ALLOPURINOL 300 MG, 300 MG [Suspect]
     Active Substance: ALLOPURINOL
     Indication: GOUT
     Route: 048
     Dates: start: 20160421, end: 20160511
  3. FISH OIL [Concomitant]
     Active Substance: FISH OIL

REACTIONS (7)
  - Pyrexia [None]
  - Hyperhidrosis [None]
  - Bacterial infection [None]
  - White blood cell count decreased [None]
  - Chills [None]
  - Headache [None]
  - Cough [None]

NARRATIVE: CASE EVENT DATE: 20160507
